FAERS Safety Report 22620464 (Version 1)
Quarter: 2023Q2

REPORT INFORMATION
  Report Type: Spontaneous
  Country: GB (occurrence: GB)
  Receive Date: 20230620
  Receipt Date: 20230620
  Transmission Date: 20230722
  Serious: Yes (Hospitalization)
  Sender: FDA-Public Use
  Company Number: GB-MHRA-MED-202306182044054530-ZDJBP

PATIENT
  Age: 25 Year
  Sex: Female
  Weight: 76 kg

DRUGS (1)
  1. MIRENA [Suspect]
     Active Substance: LEVONORGESTREL
     Indication: Contraception
     Dosage: 20?G/DAY
     Route: 015
     Dates: start: 20210307

REACTIONS (3)
  - Adnexal torsion [Recovering/Resolving]
  - Ovarian cyst [None]
  - Adnexa uteri pain [None]

NARRATIVE: CASE EVENT DATE: 20230510
